FAERS Safety Report 8286570-4 (Version None)
Quarter: 2012Q2

REPORT INFORMATION
  Report Type: 
  Country: None (occurrence: None)
  Receive Date: 20120411
  Receipt Date: 20120327
  Transmission Date: 20120825
  Serious: Yes (Hospitalization)
  Sender: FDA-Public Use
  Company Number: TPA2012A01894

PATIENT
  Age: 73 Year
  Sex: Male

DRUGS (11)
  1. XIPAMID (XIPAMIDE) [Concomitant]
  2. TRAMADOL HYDROHLORIDE [Concomitant]
  3. PANTOPRAZOLE SODIUM [Concomitant]
  4. CALCIUM D3 (COLECALCIFEROL, CALCIUM CARBONATE) [Concomitant]
  5. ENALAPRIL MALEATE [Concomitant]
  6. MARCUMAR [Concomitant]
  7. DIGITOXIN TAB [Concomitant]
  8. ADENURIC (FEBUXOSTAT) [Suspect]
     Indication: GOUT
     Dosage: 80 MG (80 MG, 1 IN 1 D) ORAL
     Route: 048
     Dates: start: 20111101, end: 20120201
  9. METOPROLOL SUCCINATE [Concomitant]
  10. NOVALGIN (METAMIZOLE SODIUM) [Concomitant]
  11. PREDNISOLONE ACETATE [Concomitant]

REACTIONS (3)
  - RENAL FAILURE ACUTE [None]
  - HYPONATRAEMIA [None]
  - DIABETES MELLITUS [None]
